FAERS Safety Report 6495920-0 (Version None)
Quarter: 2009Q4

REPORT INFORMATION
  Report Type: 
  Country: None (occurrence: None)
  Receive Date: 20091214
  Receipt Date: 20090911
  Transmission Date: 20100525
  Serious: No
  Sender: FDA-Public Use
  Company Number: US-BRISTOL-MYERS SQUIBB COMPANY-14756779

PATIENT
  Age: 9 Year
  Sex: Male
  Weight: 57 kg

DRUGS (4)
  1. ABILIFY [Suspect]
     Indication: ATTENTION DEFICIT/HYPERACTIVITY DISORDER
     Dosage: STARTED ONE YEAR AGO
  2. ABILIFY [Suspect]
     Indication: BIPOLAR DISORDER
     Dosage: STARTED ONE YEAR AGO
  3. FOCALIN [Concomitant]
  4. MIRALAX [Concomitant]

REACTIONS (4)
  - PAIN IN EXTREMITY [None]
  - RESTLESSNESS [None]
  - TIC [None]
  - TREMOR [None]
